FAERS Safety Report 22052443 (Version 1)
Quarter: 2023Q1

REPORT INFORMATION
  Report Type: Spontaneous
  Country: CN (occurrence: CN)
  Receive Date: 20230302
  Receipt Date: 20230302
  Transmission Date: 20230418
  Serious: Yes (Other)
  Sender: FDA-Public Use
  Company Number: None

PATIENT
  Age: 6 Year
  Sex: Male
  Weight: 27 kg

DRUGS (6)
  1. IFOSFAMIDE [Suspect]
     Active Substance: IFOSFAMIDE
     Indication: Osteosarcoma
     Dosage: 2.7G, QD (DILUTED WITH 0.9% SODIUM CHLORIDE 500 ML), ADJUVANT CHEMOTHERAPY, SINCE 11:30 HRS
     Route: 041
     Dates: start: 20230107, end: 20230107
  2. SODIUM CHLORIDE [Suspect]
     Active Substance: SODIUM CHLORIDE
     Indication: Medication dilution
     Dosage: 500 ML, QD, STRENGTH: 0.9%, DOSAGE FORM: INJECTION (USED TO DILUTE IFOSFAMIDE 2.7 G), ADJUVANT CHEMO
     Route: 041
     Dates: start: 20230107, end: 20230107
  3. DEXTROSE [Suspect]
     Active Substance: DEXTROSE
     Indication: Medication dilution
     Dosage: 250 ML, QD, STRENGTH: 5%, DOSAGE FORM: INJECTION (USED TO DILUTE DOXORUBICIN 36 MG), ADJUVANT CHEMOT
     Route: 041
     Dates: start: 20230107, end: 20230107
  4. DOXORUBICIN HYDROCHLORIDE [Suspect]
     Active Substance: DOXORUBICIN HYDROCHLORIDE
     Indication: Osteosarcoma
     Dosage: 36 MG, QD (DILUTED WITH 5% GLUCOSE 250 ML), ADJUVANT CHEMOTHERAPY, SINCE 11:30 HRS
     Route: 041
     Dates: start: 20230107, end: 20230107
  5. DEXRAZOXANE [Concomitant]
     Active Substance: DEXRAZOXANE
     Indication: Prophylaxis
     Dosage: 360 MG, QD (DILUTED WITH SODIUM CHLORIDE 250 ML), AT 11:00
     Route: 041
     Dates: start: 20230107, end: 20230107
  6. SODIUM CHLORIDE [Concomitant]
     Active Substance: SODIUM CHLORIDE
     Indication: Medication dilution
     Dosage: 250 ML, QD (USED TO DILUTE DEXRAZOXANE 360 MG), AT 11:00
     Route: 041
     Dates: start: 20230107, end: 20230107

REACTIONS (4)
  - Loss of consciousness [Recovering/Resolving]
  - Musculoskeletal stiffness [Recovering/Resolving]
  - Seizure [Recovering/Resolving]
  - Vomiting [Recovering/Resolving]

NARRATIVE: CASE EVENT DATE: 20230107
